FAERS Safety Report 5143495-0 (Version None)
Quarter: 2006Q4

REPORT INFORMATION
  Report Type: 
  Country: None (occurrence: None)
  Receive Date: 20061103
  Receipt Date: 20061026
  Transmission Date: 20070319
  Serious: Yes (Hospitalization)
  Sender: FDA-Public Use
  Company Number: FR-GLAXOSMITHKLINE-B0444206A

PATIENT
  Age: 32 Year
  Sex: Female

DRUGS (9)
  1. ZELITREX [Suspect]
     Indication: HERPES SIMPLEX
     Dosage: 500MG TWICE PER DAY
     Route: 048
     Dates: start: 20060926, end: 20061003
  2. IMOVANE [Concomitant]
     Indication: SLEEP DISORDER
     Dosage: 7.5MG PER DAY
     Route: 048
     Dates: start: 20060923
  3. DOLIPRANE [Concomitant]
     Route: 048
     Dates: end: 20061001
  4. VIRLIX [Concomitant]
     Dates: end: 20061001
  5. ZITHROMAX [Concomitant]
     Dates: end: 20060925
  6. TOPALGIC (FRANCE) [Concomitant]
     Dates: end: 20061002
  7. FLAGYL [Concomitant]
     Dates: end: 20060930
  8. ROCEPHIN [Concomitant]
     Dosage: 1INJ PER DAY
     Route: 042
     Dates: start: 20060923, end: 20060923
  9. XANAX [Concomitant]
     Dates: end: 20061001

REACTIONS (4)
  - ANISOCYTOSIS [None]
  - HYPOCHROMIC ANAEMIA [None]
  - LEUKOPENIA [None]
  - NEUTROPENIA [None]
